FAERS Safety Report 10145818 (Version 1)
Quarter: 2014Q2

REPORT INFORMATION
  Report Type: Spontaneous
  Country: US (occurrence: None)
  Receive Date: 20140429
  Receipt Date: 20140429
  Transmission Date: 20141212
  Serious: Yes (Congenital Anomaly)
  Sender: FDA-Public Use
  Company Number: 2316970

PATIENT
  Sex: Male

DRUGS (2)
  1. PHENYTOIN [Suspect]
     Route: 064
  2. LAMOTRIGINE [Suspect]
     Route: 064

REACTIONS (5)
  - Foetal anticonvulsant syndrome [None]
  - Hypoplastic left heart syndrome [None]
  - Maternal drugs affecting foetus [None]
  - Foetal exposure during pregnancy [None]
  - Post procedural complication [None]
